FAERS Safety Report 13097821 (Version 1)
Quarter: 2017Q1

REPORT INFORMATION
  Report Type: Spontaneous
  Country: US (occurrence: US)
  Receive Date: 20170109
  Receipt Date: 20170109
  Transmission Date: 20170428
  Serious: No
  Sender: FDA-Public Use
  Company Number: None

PATIENT
  Age: 68 Year
  Sex: Male
  Weight: 112.5 kg

DRUGS (11)
  1. ATENOLOL. [Concomitant]
     Active Substance: ATENOLOL
  2. FLEXAINIDE [Concomitant]
  3. PRALUENT [Suspect]
     Active Substance: ALIROCUMAB
     Indication: PRODUCT USED FOR UNKNOWN INDICATION
     Dosage: OTHER FREQUENCY:EVERY 2 WEEKS; OTHER; INTRAMUSCULAR?
     Route: 030
     Dates: start: 20151119, end: 20161208
  4. PODIAPN [Concomitant]
     Active Substance: DIETARY SUPPLEMENT
  5. TYLENOL [Concomitant]
     Active Substance: ACETAMINOPHEN
  6. VITAMIN D [Concomitant]
     Active Substance: CHOLECALCIFEROL
  7. FENOFIBRATE. [Concomitant]
     Active Substance: FENOFIBRATE
  8. ALPRAZOLAM. [Concomitant]
     Active Substance: ALPRAZOLAM
  9. BENEDREL [Concomitant]
  10. FISH OIL [Concomitant]
     Active Substance: FISH OIL
  11. WELCHOL [Concomitant]
     Active Substance: COLESEVELAM HYDROCHLORIDE

REACTIONS (2)
  - Multiple allergies [None]
  - Diarrhoea [None]

NARRATIVE: CASE EVENT DATE: 20161208
